FAERS Safety Report 5738267-X (Version None)
Quarter: 2008Q2

REPORT INFORMATION
  Report Type: 
  Country: None (occurrence: None)
  Receive Date: 20080514
  Receipt Date: 20080502
  Transmission Date: 20081010
  Serious: Yes (Hospitalization, Other)
  Sender: FDA-Public Use
  Company Number: HR-PFIZER INC-2008039032

PATIENT
  Sex: Female

DRUGS (11)
  1. NEURONTIN [Suspect]
     Indication: NEURALGIA
     Route: 048
  2. AMOXICILLIN + CLAVULANATE POTASSIUM [Concomitant]
  3. TRAMADOL HCL [Concomitant]
  4. ACETAMINOPHEN [Concomitant]
  5. WARFARIN SODIUM [Concomitant]
  6. TRAMADOL HYDROCHLORIDE AND ACETAMINOPHEN [Concomitant]
  7. ZOLPIDEM [Concomitant]
  8. PANTOPRAZOLE SODIUM [Concomitant]
  9. POTASSIUM CHLORIDE [Concomitant]
  10. DIAZEPAM [Concomitant]
  11. REVIPARIN [Concomitant]

REACTIONS (2)
  - LEUKOPENIA [None]
  - NEUTROPENIA [None]
